FAERS Safety Report 20417654 (Version 1)
Quarter: 2022Q1

REPORT INFORMATION
  Report Type: Spontaneous
  Country: US (occurrence: US)
  Receive Date: 20220202
  Receipt Date: 20220202
  Transmission Date: 20220423
  Serious: No
  Sender: FDA-Public Use
  Company Number: US-PFIZER INC-202101541424

PATIENT
  Age: 35 Year
  Sex: Female

DRUGS (3)
  1. XELJANZ XR [Suspect]
     Active Substance: TOFACITINIB CITRATE
     Indication: Rheumatoid arthritis
     Dosage: 11 MG, 1X/DAY
     Route: 048
     Dates: start: 2019
  2. IBUPROFEN [Concomitant]
     Active Substance: IBUPROFEN
     Dosage: UNK
  3. TYLENOL [Concomitant]
     Active Substance: ACETAMINOPHEN
     Dosage: UNK

REACTIONS (15)
  - Anxiety [Unknown]
  - Depression [Unknown]
  - Malaise [Unknown]
  - Pain [Recovered/Resolved]
  - Product dose omission issue [Unknown]
  - Condition aggravated [Recovering/Resolving]
  - Loss of personal independence in daily activities [Unknown]
  - Dizziness [Unknown]
  - Diplopia [Unknown]
  - Eye swelling [Unknown]
  - COVID-19 [Unknown]
  - Sinus congestion [Recovered/Resolved]
  - Cough [Recovered/Resolved]
  - Headache [Unknown]
  - Fatigue [Recovered/Resolved]
